FAERS Safety Report 8472866-X (Version None)
Quarter: 2012Q2

REPORT INFORMATION
  Report Type: 
  Country: None (occurrence: None)
  Receive Date: 20120627
  Receipt Date: 20110504
  Transmission Date: 20120825
  Serious: No
  Sender: FDA-Public Use
  Company Number: US-MYLANLABS-2011S1009426

PATIENT
  Age: 24 Month
  Sex: Male
  Weight: 13.61 kg

DRUGS (1)
  1. OMEPRAZOLE [Suspect]
     Indication: GASTROOESOPHAGEAL REFLUX DISEASE
     Route: 048
     Dates: start: 20110401, end: 20110502

REACTIONS (6)
  - DECREASED APPETITE [None]
  - DIARRHOEA [None]
  - TRISMUS [None]
  - VOMITING [None]
  - DRUG EFFECT INCREASED [None]
  - AGGRESSION [None]
